FAERS Safety Report 6818178-9 (Version None)
Quarter: 2010Q3

REPORT INFORMATION
  Report Type: 
  Country: None (occurrence: None)
  Receive Date: 20100706
  Receipt Date: 20070619
  Transmission Date: 20110219
  Serious: No
  Sender: FDA-Public Use
  Company Number: US-PFIZER INC-2007048459

PATIENT
  Sex: Female
  Weight: 68.04 kg

DRUGS (9)
  1. ZITHROMAX [Suspect]
     Indication: INFECTED CYST
     Dates: start: 20070515
  2. HYDROCHLOROTHIAZIDE [Concomitant]
  3. BETIMOL [Concomitant]
  4. VITAMINS [Concomitant]
  5. LUMIGAN [Concomitant]
  6. ATIVAN [Concomitant]
  7. TYLENOL [Concomitant]
  8. CYSTEINE [Concomitant]
     Indication: DRY EYE
  9. ACETYLSALICYLIC ACID [Concomitant]

REACTIONS (4)
  - ANXIETY [None]
  - DIARRHOEA [None]
  - DYSGEUSIA [None]
  - NAUSEA [None]
